FAERS Safety Report 5765765-5 (Version None)
Quarter: 2008Q2

REPORT INFORMATION
  Report Type: 
  Country: None (occurrence: None)
  Receive Date: 20080611
  Receipt Date: 20080527
  Transmission Date: 20081010
  Serious: Yes (Other)
  Sender: FDA-Public Use
  Company Number: US-WYE-H04309308

PATIENT
  Sex: Female
  Weight: 92.7 kg

DRUGS (7)
  1. EFFEXOR [Suspect]
     Indication: ANXIETY
     Dosage: UNKNOWN
     Dates: end: 20080501
  2. EFFEXOR [Interacting]
     Indication: DEPRESSION
     Dosage: INCREASED TO AN UNSPECIFIED DOSE
     Dates: start: 20080501
  3. ZOCOR [Concomitant]
     Indication: BLOOD CHOLESTEROL INCREASED
     Dosage: UNKNOWN
  4. LISINOPRIL [Concomitant]
     Indication: HYPERTENSION
     Dosage: UNKNOWN
  5. CHANTIX [Interacting]
     Indication: EX-SMOKER
     Route: 048
     Dates: start: 20080419, end: 20080421
  6. CHANTIX [Interacting]
     Route: 048
     Dates: start: 20080422, end: 20080425
  7. CHANTIX [Interacting]
     Route: 048
     Dates: start: 20080426

REACTIONS (5)
  - ANXIETY [None]
  - DEPRESSION [None]
  - DRUG EFFECT DECREASED [None]
  - DRUG INTERACTION [None]
  - TREMOR [None]
